FAERS Safety Report 9790830 (Version 3)
Quarter: 2014Q2

REPORT INFORMATION
  Report Type: Spontaneous
  Country: US (occurrence: US)
  Receive Date: 20131231
  Receipt Date: 20140618
  Transmission Date: 20141212
  Serious: Yes (Hospitalization, Disabling)
  Sender: FDA-Public Use
  Company Number: US-009507513-1312USA012394

PATIENT
  Sex: Female
  Weight: 104.76 kg

DRUGS (1)
  1. NUVARING [Suspect]
     Indication: CONTRACEPTION
     Dosage: 3 WKS IN, 1 WK OUT
     Route: 067
     Dates: start: 20110419, end: 20110524

REACTIONS (14)
  - Deep vein thrombosis [Unknown]
  - Deep vein thrombosis [Unknown]
  - Drug hypersensitivity [Unknown]
  - Urticaria [Unknown]
  - Drug hypersensitivity [Unknown]
  - Urticaria [Unknown]
  - Stress fracture [Unknown]
  - Tendon injury [Unknown]
  - Colitis [Unknown]
  - Asthma [Unknown]
  - Atrial flutter [Unknown]
  - Haematochezia [Recovered/Resolved]
  - Gingival operation [Unknown]
  - Cyst [Unknown]
